FAERS Safety Report 23667295 (Version 2)
Quarter: 2024Q2

REPORT INFORMATION
  Report Type: Spontaneous
  Country: DE (occurrence: DE)
  Receive Date: 20240325
  Receipt Date: 20240430
  Transmission Date: 20240715
  Serious: Yes (Hospitalization, Other)
  Sender: FDA-Public Use
  Company Number: DE-002147023-NVSC2024DE060388

PATIENT
  Age: 51 Year
  Sex: Female
  Weight: 55 kg

DRUGS (1)
  1. AIMOVIG [Suspect]
     Active Substance: ERENUMAB-AOOE
     Indication: Migraine
     Dosage: UNK, Q4W (1X FOR ONE YEAR)
     Route: 058
     Dates: start: 202303

REACTIONS (5)
  - Acute myocardial infarction [Recovered/Resolved with Sequelae]
  - Artery dissection [Recovered/Resolved with Sequelae]
  - Angina pectoris [Unknown]
  - Hyperhidrosis [Unknown]
  - Pain in jaw [Unknown]

NARRATIVE: CASE EVENT DATE: 20240304
